FAERS Safety Report 5108088-X (Version None)
Quarter: 2006Q3

REPORT INFORMATION
  Report Type: 
  Country: None (occurrence: None)
  Receive Date: 20060919
  Receipt Date: 20060104
  Transmission Date: 20061208
  Serious: Yes (Death, Life-Threatening, Hospitalization)
  Sender: FDA-Public Use
  Company Number: AR-ROCHE-430604

PATIENT
  Age: 55 Year
  Sex: Female

DRUGS (3)
  1. CAPECITABINE [Suspect]
     Indication: BREAST CANCER
     Dosage: DAILY FOR 14 DAYS, THEN 7 DAYS REST DATES PROVIDED ARE FOR CYCLE 4
     Route: 048
     Dates: start: 20051116, end: 20051129
  2. BROMAZEPAM [Concomitant]
     Dates: start: 19900615, end: 20051211
  3. ENALAPRIL [Concomitant]
     Dates: start: 20030615, end: 20051211

REACTIONS (5)
  - COORDINATION ABNORMAL [None]
  - HYPOKALAEMIA [None]
  - HYPOXIA [None]
  - RESPIRATORY FAILURE [None]
  - SEPSIS [None]
